FAERS Safety Report 6262072-1 (Version None)
Quarter: 2009Q3

REPORT INFORMATION
  Report Type: 
  Country: None (occurrence: None)
  Receive Date: 20090702
  Receipt Date: 20090316
  Transmission Date: 20100115
  Serious: No
  Sender: FDA-Public Use
  Company Number: 1000005237

PATIENT
  Age: 69 Year
  Sex: Female

DRUGS (8)
  1. BYSTOLIC [Suspect]
     Indication: HYPERTENSION
     Dosage: 10 MG (10 MG, 1 IN 1 D), ORAL
     Route: 048
     Dates: start: 20090223, end: 20090313
  2. LIPITOR [Concomitant]
  3. AMBIEN [Concomitant]
  4. DIOVAN [Concomitant]
  5. TRAMADOL [Concomitant]
  6. NEXIUM [Concomitant]
  7. OXYBUTYNIN CHLORIDE [Concomitant]
  8. GEMFIBROZIL [Concomitant]

REACTIONS (1)
  - RASH [None]
